FAERS Safety Report 18699143 (Version 1)
Quarter: 2021Q1

REPORT INFORMATION
  Report Type: Spontaneous
  Country: DE (occurrence: DE)
  Receive Date: 20210104
  Receipt Date: 20210104
  Transmission Date: 20210419
  Serious: Yes (Hospitalization)
  Sender: FDA-Public Use
  Company Number: NVSC2020DE344021

PATIENT
  Sex: Male
  Weight: 100 kg

DRUGS (4)
  1. CARBOPLATIN. [Suspect]
     Active Substance: CARBOPLATIN
     Dosage: 350 MG
     Route: 065
     Dates: start: 20201130
  2. PEMBROLIZUMAB. [Suspect]
     Active Substance: PEMBROLIZUMAB
     Indication: NON-SMALL CELL LUNG CANCER
     Dosage: 200 MG, FIRST LINE
     Route: 065
     Dates: start: 20200813
  3. PEMBROLIZUMAB. [Suspect]
     Active Substance: PEMBROLIZUMAB
     Dosage: 200 MG
     Route: 065
     Dates: start: 20201130
  4. CARBOPLATIN. [Suspect]
     Active Substance: CARBOPLATIN
     Indication: NON-SMALL CELL LUNG CANCER
     Dosage: 437.3 MG, FIRST LINE
     Route: 065
     Dates: start: 20200813

REACTIONS (1)
  - Hypersensitivity pneumonitis [Recovering/Resolving]

NARRATIVE: CASE EVENT DATE: 20201125
